FAERS Safety Report 5285520-2 (Version None)
Quarter: 2007Q1

REPORT INFORMATION
  Report Type: 
  Country: None (occurrence: None)
  Receive Date: 20070328
  Receipt Date: 20070322
  Transmission Date: 20070707
  Serious: Yes (Other)
  Sender: FDA-Public Use
  Company Number: 20073551

PATIENT
  Sex: Male

DRUGS (4)
  1. LIORESAL [Suspect]
     Indication: MUSCLE SPASTICITY
     Dosage: UNK MCG, DAILY, INTRATHECAL
     Route: 037
  2. MORPHINE [Concomitant]
  3. FENTANYL [Concomitant]
  4. BUPIVACAINE [Concomitant]

REACTIONS (3)
  - NO THERAPEUTIC RESPONSE [None]
  - PARAPLEGIA [None]
  - SPINAL CORD INFECTION [None]
